FAERS Safety Report 9812596 (Version 1)
Quarter: 2014Q1

REPORT INFORMATION
  Report Type: Spontaneous
  Country: US (occurrence: US)
  Receive Date: 20140113
  Receipt Date: 20140113
  Transmission Date: 20141002
  Serious: Yes (Other)
  Sender: FDA-Public Use
  Company Number: US-JNJFOC-20140104471

PATIENT
  Sex: Female

DRUGS (2)
  1. ROGAINE REGULAR STRENGTH WOMEN (2%) [Suspect]
     Route: 061
  2. ROGAINE REGULAR STRENGTH WOMEN (2%) [Suspect]
     Indication: HAIR GROWTH ABNORMAL
     Dosage: AS DIRECTED ON THE DROPPER, ONCE A DAY OFF AND ON FOR THE LAST MONTH
     Route: 061

REACTIONS (4)
  - Visual impairment [Unknown]
  - Inappropriate schedule of drug administration [Unknown]
  - Erythema [Not Recovered/Not Resolved]
  - Alopecia [Unknown]
